FAERS Safety Report 24706674 (Version 1)
Quarter: 2024Q4

REPORT INFORMATION
  Report Type: Spontaneous
  Country: US (occurrence: US)
  Receive Date: 20241206
  Receipt Date: 20241206
  Transmission Date: 20250115
  Serious: No
  Sender: MERCK
  Company Number: US-009507513-2411USA002789

PATIENT
  Age: 31 Year
  Sex: Female

DRUGS (8)
  1. KEYTRUDA [Suspect]
     Active Substance: PEMBROLIZUMAB
     Indication: Natural killer-cell leukaemia
     Dosage: UNK
  2. KEYTRUDA [Suspect]
     Active Substance: PEMBROLIZUMAB
     Indication: Natural killer-cell lymphoblastic lymphoma
  3. GEMCITABINE [Concomitant]
     Active Substance: GEMCITABINE
     Indication: Natural killer-cell leukaemia
     Dosage: UNK
  4. GEMCITABINE [Concomitant]
     Active Substance: GEMCITABINE
     Indication: Natural killer-cell lymphoblastic lymphoma
  5. CISPLATIN [Concomitant]
     Active Substance: CISPLATIN
     Indication: Natural killer-cell leukaemia
     Dosage: UNK
  6. CISPLATIN [Concomitant]
     Active Substance: CISPLATIN
     Indication: Natural killer-cell lymphoblastic lymphoma
  7. DEXAMETHASONE [Concomitant]
     Active Substance: DEXAMETHASONE
     Indication: Natural killer-cell leukaemia
     Dosage: UNK
  8. DEXAMETHASONE [Concomitant]
     Active Substance: DEXAMETHASONE
     Indication: Natural killer-cell lymphoblastic lymphoma

REACTIONS (1)
  - Off label use [Unknown]
